FAERS Safety Report 4364189-5 (Version None)
Quarter: 2004Q2

REPORT INFORMATION
  Report Type: 
  Country: None (occurrence: None)
  Receive Date: 20040519
  Receipt Date: 20040514
  Transmission Date: 20050107
  Serious: Yes (Disabling)
  Sender: FDA-Public Use
  Company Number: HQWYE341402APR04

PATIENT
  Age: 47 Year
  Sex: Male

DRUGS (14)
  1. EFFEXOR XR [Suspect]
     Indication: ANXIETY
     Dosage: 150 MG 1X PER 1 DAY, ORAL; ORAL; ORAL
     Route: 048
     Dates: start: 20040101, end: 20040211
  2. EFFEXOR XR [Suspect]
     Indication: DEPRESSION
     Dosage: 150 MG 1X PER 1 DAY, ORAL; ORAL; ORAL
     Route: 048
     Dates: start: 20040101, end: 20040211
  3. EFFEXOR XR [Suspect]
     Indication: ANXIETY
     Dosage: 150 MG 1X PER 1 DAY, ORAL; ORAL; ORAL
     Route: 048
     Dates: start: 20040212, end: 20040301
  4. EFFEXOR XR [Suspect]
     Indication: DEPRESSION
     Dosage: 150 MG 1X PER 1 DAY, ORAL; ORAL; ORAL
     Route: 048
     Dates: start: 20040212, end: 20040301
  5. EFFEXOR XR [Suspect]
     Indication: ANXIETY
     Dosage: 150 MG 1X PER 1 DAY, ORAL; ORAL; ORAL
     Route: 048
     Dates: start: 20040301
  6. EFFEXOR XR [Suspect]
     Indication: DEPRESSION
     Dosage: 150 MG 1X PER 1 DAY, ORAL; ORAL; ORAL
     Route: 048
     Dates: start: 20040301
  7. LIPITOR [Concomitant]
  8. TRAZODONE HCL [Concomitant]
  9. ULTRAM [Concomitant]
  10. HUMALOG [Concomitant]
  11. ALPHAGAN [Concomitant]
  12. AZOPT [Concomitant]
  13. XALATAN [Concomitant]
  14. NEURONTIN [Concomitant]

REACTIONS (5)
  - BLINDNESS UNILATERAL [None]
  - DRUG WITHDRAWAL SYNDROME [None]
  - SUICIDAL IDEATION [None]
  - VISUAL ACUITY REDUCED [None]
  - VITREOUS HAEMORRHAGE [None]
